FAERS Safety Report 11942207 (Version 1)
Quarter: 2016Q1

REPORT INFORMATION
  Report Type: Spontaneous
  Country: US (occurrence: US)
  Receive Date: 20160125
  Receipt Date: 20160125
  Transmission Date: 20160526
  Serious: No
  Sender: FDA-Public Use
  Company Number: US-NOVEN PHARMACEUTICALS, INC.-US2015001134

PATIENT
  Age: 46 Year
  Sex: Female

DRUGS (3)
  1. GINSENG [Concomitant]
     Active Substance: ASIAN GINSENG
  2. CLARITIN [Concomitant]
     Active Substance: LORATADINE
  3. BRISDELLE [Suspect]
     Active Substance: PAROXETINE MESYLATE
     Indication: HOT FLUSH
     Dosage: 7.5 MG, UNKNOWN
     Route: 048
     Dates: start: 201510, end: 201510

REACTIONS (4)
  - Ear pain [Unknown]
  - Therapy cessation [Not Recovered/Not Resolved]
  - Nausea [Unknown]
  - Headache [Unknown]

NARRATIVE: CASE EVENT DATE: 201510
